FAERS Safety Report 6894490-2 (Version None)
Quarter: 2010Q3

REPORT INFORMATION
  Report Type: 
  Country: None (occurrence: None)
  Receive Date: 20100802
  Receipt Date: 20100701
  Transmission Date: 20110219
  Serious: No
  Sender: FDA-Public Use
  Company Number: US-BAYER-201017805BCC

PATIENT
  Age: 80 Year
  Sex: Female
  Weight: 79 kg

DRUGS (3)
  1. ALEVE (CAPLET) [Suspect]
     Indication: ARTHRALGIA
     Dosage: TOTAL DAILY DOSE: 880 MG  UNIT DOSE: 220 MG
     Route: 048
     Dates: start: 20100630
  2. LOTEMAX [Concomitant]
     Indication: GLAUCOMA
     Route: 047
  3. UNKNOWN EYE DROPS [Concomitant]
     Indication: GLAUCOMA
     Route: 047

REACTIONS (1)
  - NO ADVERSE EVENT [None]
